FAERS Safety Report 4945480-8 (Version None)
Quarter: 2006Q1

REPORT INFORMATION
  Report Type: 
  Country: None (occurrence: None)
  Receive Date: 20060316
  Receipt Date: 20060310
  Transmission Date: 20060701
  Serious: Yes (Hospitalization)
  Sender: FDA-Public Use
  Company Number: FR-GLAXOSMITHKLINE-B0415674A

PATIENT
  Age: 57 Year
  Sex: Male

DRUGS (5)
  1. ZIAGEN [Suspect]
     Indication: HIV INFECTION
     Dosage: 300MG TWICE PER DAY
     Route: 048
     Dates: start: 20040224, end: 20040721
  2. BACTRIM [Suspect]
     Indication: HIV INFECTION
     Dosage: 1UNIT PER DAY
     Route: 048
     Dates: start: 20040224, end: 20040721
  3. KALETRA [Suspect]
     Indication: HIV INFECTION
     Dosage: 6UNIT PER DAY
     Route: 048
     Dates: start: 20040224, end: 20040721
  4. EPIVIR [Concomitant]
     Indication: HIV INFECTION
     Dosage: 300MG PER DAY
     Route: 048
     Dates: start: 20040224, end: 20040721
  5. LAMISIL [Concomitant]
     Indication: FUNGAL INFECTION
     Dosage: 1UNIT PER DAY
     Route: 048
     Dates: start: 20040529, end: 20040710

REACTIONS (13)
  - BLISTER [None]
  - DIARRHOEA [None]
  - ERYTHEMA [None]
  - ERYTHEMA MULTIFORME [None]
  - PRURITUS [None]
  - PYREXIA [None]
  - RASH [None]
  - SCAB [None]
  - SKIN DISORDER [None]
  - SKIN LESION [None]
  - SKIN ULCER [None]
  - STEVENS-JOHNSON SYNDROME [None]
  - TOXIC EPIDERMAL NECROLYSIS [None]
